FAERS Safety Report 25074913 (Version 1)
Quarter: 2025Q1

REPORT INFORMATION
  Report Type: Spontaneous
  Country: GB (occurrence: GB)
  Receive Date: 20250313
  Receipt Date: 20250313
  Transmission Date: 20250409
  Serious: Yes (Other)
  Sender: MYLAN
  Company Number: None

PATIENT
  Age: 70 Year
  Sex: Male

DRUGS (52)
  1. FAMOTIDINE [Suspect]
     Active Substance: FAMOTIDINE
     Indication: Product used for unknown indication
  2. FAMOTIDINE [Suspect]
     Active Substance: FAMOTIDINE
     Route: 048
  3. FAMOTIDINE [Suspect]
     Active Substance: FAMOTIDINE
     Route: 048
  4. FAMOTIDINE [Suspect]
     Active Substance: FAMOTIDINE
  5. CLOZAPINE [Concomitant]
     Active Substance: CLOZAPINE
  6. CLOZAPINE [Concomitant]
     Active Substance: CLOZAPINE
     Route: 048
  7. CLOZAPINE [Concomitant]
     Active Substance: CLOZAPINE
     Route: 048
  8. CLOZAPINE [Concomitant]
     Active Substance: CLOZAPINE
  9. DEMECLOCYCLINE [Concomitant]
     Active Substance: DEMECLOCYCLINE
  10. DEMECLOCYCLINE [Concomitant]
     Active Substance: DEMECLOCYCLINE
     Route: 048
  11. DEMECLOCYCLINE [Concomitant]
     Active Substance: DEMECLOCYCLINE
     Route: 048
  12. DEMECLOCYCLINE [Concomitant]
     Active Substance: DEMECLOCYCLINE
  13. Easyhaler Salbutamol [Concomitant]
  14. Easyhaler Salbutamol [Concomitant]
     Route: 055
  15. Easyhaler Salbutamol [Concomitant]
     Route: 055
  16. Easyhaler Salbutamol [Concomitant]
  17. CALCIUM CARBONATE\CHOLECALCIFEROL [Concomitant]
     Active Substance: CALCIUM CARBONATE\CHOLECALCIFEROL
  18. CALCIUM CARBONATE\CHOLECALCIFEROL [Concomitant]
     Active Substance: CALCIUM CARBONATE\CHOLECALCIFEROL
     Route: 048
  19. CALCIUM CARBONATE\CHOLECALCIFEROL [Concomitant]
     Active Substance: CALCIUM CARBONATE\CHOLECALCIFEROL
     Route: 048
  20. CALCIUM CARBONATE\CHOLECALCIFEROL [Concomitant]
     Active Substance: CALCIUM CARBONATE\CHOLECALCIFEROL
  21. SOLIFENACIN [Concomitant]
     Active Substance: SOLIFENACIN
  22. SOLIFENACIN [Concomitant]
     Active Substance: SOLIFENACIN
     Route: 048
  23. SOLIFENACIN [Concomitant]
     Active Substance: SOLIFENACIN
     Route: 048
  24. SOLIFENACIN [Concomitant]
     Active Substance: SOLIFENACIN
  25. ASPIRIN [Concomitant]
     Active Substance: ASPIRIN
  26. ASPIRIN [Concomitant]
     Active Substance: ASPIRIN
     Route: 048
  27. ASPIRIN [Concomitant]
     Active Substance: ASPIRIN
     Route: 048
  28. ASPIRIN [Concomitant]
     Active Substance: ASPIRIN
  29. CARBOCYSTEINE [Concomitant]
     Active Substance: CARBOCYSTEINE
  30. CARBOCYSTEINE [Concomitant]
     Active Substance: CARBOCYSTEINE
     Route: 048
  31. CARBOCYSTEINE [Concomitant]
     Active Substance: CARBOCYSTEINE
     Route: 048
  32. CARBOCYSTEINE [Concomitant]
     Active Substance: CARBOCYSTEINE
  33. FOLIC ACID [Concomitant]
     Active Substance: FOLIC ACID
     Dosage: 5 MILLIGRAM, AM (EVERY MORNING)
  34. FOLIC ACID [Concomitant]
     Active Substance: FOLIC ACID
     Dosage: 5 MILLIGRAM, AM (EVERY MORNING)
     Route: 048
  35. FOLIC ACID [Concomitant]
     Active Substance: FOLIC ACID
     Dosage: 5 MILLIGRAM, AM (EVERY MORNING)
     Route: 048
  36. FOLIC ACID [Concomitant]
     Active Substance: FOLIC ACID
     Dosage: 5 MILLIGRAM, AM (EVERY MORNING)
  37. ZOLPIDEM [Concomitant]
     Active Substance: ZOLPIDEM TARTRATE
  38. ZOLPIDEM [Concomitant]
     Active Substance: ZOLPIDEM TARTRATE
     Route: 048
  39. ZOLPIDEM [Concomitant]
     Active Substance: ZOLPIDEM TARTRATE
     Route: 048
  40. ZOLPIDEM [Concomitant]
     Active Substance: ZOLPIDEM TARTRATE
  41. TRELEGY ELLIPTA [Concomitant]
     Active Substance: FLUTICASONE FUROATE\UMECLIDINIUM BROMIDE\VILANTEROL TRIFENATATE
  42. TRELEGY ELLIPTA [Concomitant]
     Active Substance: FLUTICASONE FUROATE\UMECLIDINIUM BROMIDE\VILANTEROL TRIFENATATE
     Route: 055
  43. TRELEGY ELLIPTA [Concomitant]
     Active Substance: FLUTICASONE FUROATE\UMECLIDINIUM BROMIDE\VILANTEROL TRIFENATATE
     Route: 055
  44. TRELEGY ELLIPTA [Concomitant]
     Active Substance: FLUTICASONE FUROATE\UMECLIDINIUM BROMIDE\VILANTEROL TRIFENATATE
  45. DOCUSATE [Concomitant]
     Active Substance: DOCUSATE
  46. DOCUSATE [Concomitant]
     Active Substance: DOCUSATE
     Route: 048
  47. DOCUSATE [Concomitant]
     Active Substance: DOCUSATE
     Route: 048
  48. DOCUSATE [Concomitant]
     Active Substance: DOCUSATE
  49. FERROUS SULFATE [Concomitant]
     Active Substance: FERROUS SULFATE
  50. FERROUS SULFATE [Concomitant]
     Active Substance: FERROUS SULFATE
     Route: 048
  51. FERROUS SULFATE [Concomitant]
     Active Substance: FERROUS SULFATE
     Route: 048
  52. FERROUS SULFATE [Concomitant]
     Active Substance: FERROUS SULFATE

REACTIONS (1)
  - Hyponatraemia [Unknown]
